FAERS Safety Report 17997511 (Version 1)
Quarter: 2020Q3

REPORT INFORMATION
  Report Type: Report from Study
  Country: BR (occurrence: BR)
  Receive Date: 20200708
  Receipt Date: 20200708
  Transmission Date: 20201103
  Serious: Yes (Disabling, Other)
  Sender: FDA-Public Use
  Company Number: NVSC2020BR189632

PATIENT
  Age: 73 Year
  Sex: Female

DRUGS (2)
  1. DIOVAN AMLO FIX [Suspect]
     Active Substance: AMLODIPINE\VALSARTAN
     Indication: HYPERTENSION
     Dosage: UNK (MORE THAN 10 YEARS AGO)
     Route: 065
  2. GALVUS MET [Suspect]
     Active Substance: METFORMIN HYDROCHLORIDE\VILDAGLIPTIN
     Indication: PRODUCT USED FOR UNKNOWN INDICATION
     Dosage: UNK (ABOUT 8 YEARS AGO)
     Route: 065

REACTIONS (9)
  - Memory impairment [Unknown]
  - Malaise [Unknown]
  - Blindness [Recovered/Resolved]
  - Urinary tract infection [Unknown]
  - Feeling cold [Unknown]
  - Fear of falling [Unknown]
  - Age-related macular degeneration [Unknown]
  - Movement disorder [Unknown]
  - Diabetes mellitus [Unknown]

NARRATIVE: CASE EVENT DATE: 2010
